FAERS Safety Report 8987549 (Version 1)
Quarter: 2012Q4

REPORT INFORMATION
  Report Type: 
  Country: CH (occurrence: CH)
  Receive Date: 20121227
  Receipt Date: 20121227
  Transmission Date: 20130627
  Serious: Yes (Death)
  Sender: FDA-Public Use
  Company Number: CH-BAYER-2012-133312

PATIENT
  Age: 81 Year
  Sex: Male
  Weight: 80 kg

DRUGS (12)
  1. ASPIRIN CARDIO [Suspect]
     Indication: PROPHYLACTIC
     Dosage: 100 mg, QD
     Route: 048
     Dates: end: 20121209
  2. CLEXANE [Suspect]
     Indication: PROPHYLACTIC
     Dosage: 80 mg, BID
     Route: 058
     Dates: start: 20121207, end: 20121209
  3. LIQUEMINE [Suspect]
     Indication: PROPHYLACTIC
     Dosage: 5000 iu, BID
     Route: 058
     Dates: start: 20121208, end: 20121209
  4. REMERON [Suspect]
     Indication: DEPRESSION
     Dosage: 30 mg, QD
     Route: 048
     Dates: start: 20121207, end: 20121209
  5. DAFALGAN [Concomitant]
     Indication: ACUTE PAIN
     Dosage: 500 mg, TID, as needed
     Route: 048
  6. ZANIDIP [Concomitant]
     Indication: ESSENTIAL HYPERTENSION
     Dosage: 15 mg, QD
     Route: 048
     Dates: start: 20121205
  7. TEMGESIC [Concomitant]
     Indication: ACUTE PAIN
     Dosage: 0.2 mg, BID, as needed
     Route: 060
  8. NEPHROTRANS [Concomitant]
     Indication: CHRONIC RENAL FAILURE
     Dosage: UNK
     Route: 048
  9. DIALVIT [Concomitant]
     Indication: CHRONIC RENAL FAILURE
     Dosage: UNK
     Route: 048
  10. VITARUBIN [Concomitant]
     Indication: VITAMIN DEFICIENCY
     Dosage: UNK
     Route: 030
     Dates: start: 20121204
  11. DISTRANEURIN [Concomitant]
     Indication: ANXIETY DISORDER
     Dosage: 300 mg, TID
     Route: 048
     Dates: start: 20121208, end: 20121209
  12. HALDOL [Concomitant]
     Indication: DELIRIUM
     Dosage: 1 mg, 2 total
     Route: 058
     Dates: start: 20121208, end: 20121209

REACTIONS (17)
  - Drug prescribing error [Fatal]
  - Therapeutic response increased [Fatal]
  - Delirium [Fatal]
  - Fall [Fatal]
  - Haemorrhage intracranial [Fatal]
  - Depressed mood [None]
  - Cognitive disorder [None]
  - Cerebral atrophy [None]
  - Leukoencephalopathy [None]
  - Suicidal ideation [None]
  - Head injury [None]
  - Somnolence [None]
  - Haematoma [None]
  - Hyperkalaemia [None]
  - Agitation [None]
  - Subdural haematoma [None]
  - Subarachnoid haemorrhage [None]
